FAERS Safety Report 10479748 (Version 1)
Quarter: 2014Q3

REPORT INFORMATION
  Report Type: Spontaneous
  Country: GB (occurrence: GB)
  Receive Date: 20140927
  Receipt Date: 20140927
  Transmission Date: 20150326
  Serious: Yes (Life-Threatening)
  Sender: FDA-Public Use
  Company Number: PHHY2014GB122243

PATIENT
  Age: 84 Year
  Sex: Male
  Weight: 100 kg

DRUGS (9)
  1. FERROUS SULFATE [Concomitant]
     Active Substance: FERROUS SULFATE\FERROUS SULFATE, DRIED
  2. HUMULIN NOS [Concomitant]
     Active Substance: INSULIN HUMAN
  3. FINASTERIDE. [Concomitant]
     Active Substance: FINASTERIDE
  4. FRUSEMIDE [Concomitant]
     Active Substance: FUROSEMIDE
  5. OXYBUTYNIN [Concomitant]
     Active Substance: OXYBUTYNIN
  6. TAMSULOSIN [Concomitant]
     Active Substance: TAMSULOSIN
  7. MEROPENEM. [Suspect]
     Active Substance: MEROPENEM
     Indication: KLEBSIELLA SEPSIS
     Dosage: 1 G, UNK
     Route: 042
     Dates: start: 20140904, end: 20140904
  8. PARACETAMOL [Concomitant]
     Active Substance: ACETAMINOPHEN
  9. BICALUTAMIDE. [Concomitant]
     Active Substance: BICALUTAMIDE

REACTIONS (5)
  - Depressed level of consciousness [Recovered/Resolved with Sequelae]
  - Tachycardia [Recovered/Resolved with Sequelae]
  - Bronchospasm [Recovered/Resolved with Sequelae]
  - Oxygen saturation decreased [Recovered/Resolved]
  - Blood pressure systolic decreased [Recovered/Resolved]

NARRATIVE: CASE EVENT DATE: 20140904
